FAERS Safety Report 9153819 (Version 2)
Quarter: 2013Q4

REPORT INFORMATION
  Report Type: Spontaneous
  Country: FR (occurrence: FR)
  Receive Date: 20130311
  Receipt Date: 20131024
  Transmission Date: 20140711
  Serious: Yes (Other)
  Sender: FDA-Public Use
  Company Number: FR-JNJFOC-20130212802

PATIENT
  Age: 39 Year
  Sex: Female
  Weight: 86 kg

DRUGS (2)
  1. REMICADE [Suspect]
     Indication: COLITIS ULCERATIVE
     Dosage: 3 RD INFUSION
     Route: 042
     Dates: start: 20121127
  2. REMICADE [Suspect]
     Indication: COLITIS ULCERATIVE
     Dosage: 3 RD INFUSION
     Route: 042

REACTIONS (1)
  - Visual acuity reduced [Not Recovered/Not Resolved]
